FAERS Safety Report 4342517-4 (Version None)
Quarter: 2004Q2

REPORT INFORMATION
  Report Type: 
  Country: None (occurrence: None)
  Receive Date: 20040416
  Receipt Date: 20040403
  Transmission Date: 20050107
  Serious: Yes (Death, Hospitalization, Other)
  Sender: FDA-Public Use
  Company Number: 2004016999

PATIENT
  Age: 10 Year
  Sex: Female
  Weight: 29 kg

DRUGS (8)
  1. VORICONAZOLE (VORICONAZOLE) [Suspect]
     Indication: BRONCHOPULMONARY ASPERGILLOSIS
     Dosage: ORAL
     Route: 048
     Dates: start: 20040113, end: 20040220
  2. CYCLOPHOSPHAMIDE [Concomitant]
  3. PIP/TAZO (PIPERACILLIN SODIUM, TAZOBACTAM) [Concomitant]
  4. AMIKACIN [Concomitant]
  5. MEROPENEM (MEROPENEM) [Concomitant]
  6. VANCOMYCIN [Concomitant]
  7. AMPHOTERICIN B [Concomitant]
  8. ITRACONAZOLE [Concomitant]

REACTIONS (8)
  - BACILLUS INFECTION [None]
  - BACTERIAL INFECTION [None]
  - BACTERIAL SEPSIS [None]
  - DIARRHOEA [None]
  - LOBAR PNEUMONIA [None]
  - NECROSIS [None]
  - RENAL FAILURE [None]
  - RESPIRATORY DISTRESS [None]
